FAERS Safety Report 12297755 (Version 3)
Quarter: 2017Q1

REPORT INFORMATION
  Report Type: Spontaneous
  Country: BR (occurrence: BR)
  Receive Date: 20160422
  Receipt Date: 20170330
  Transmission Date: 20170428
  Serious: Yes (Other)
  Sender: FDA-Public Use
  Company Number: BR-ABBVIE-16P-020-1612271-00

PATIENT
  Sex: Female
  Weight: 64 kg

DRUGS (3)
  1. DEPAKENE [Suspect]
     Active Substance: VALPROIC ACID
     Indication: SEIZURE
     Route: 048
  2. HYDROCHLOROTHIAZIDE. [Concomitant]
     Active Substance: HYDROCHLOROTHIAZIDE
     Indication: BLOOD PRESSURE ABNORMAL
     Dosage: 2 TABLETS DAILY; MORNING AND AFTERNOON
     Route: 048
  3. PROPANOLOL [Concomitant]
     Active Substance: PROPRANOLOL HYDROCHLORIDE
     Indication: HYPERTENSION
     Route: 048

REACTIONS (17)
  - Diplopia [Recovering/Resolving]
  - Back pain [Recovering/Resolving]
  - Alopecia [Recovering/Resolving]
  - Gastric disorder [Not Recovered/Not Resolved]
  - Vein disorder [Unknown]
  - Lacrimation increased [Recovering/Resolving]
  - Somnolence [Recovering/Resolving]
  - Glaucoma [Recovering/Resolving]
  - Pruritus generalised [Recovering/Resolving]
  - Muscle spasms [Recovering/Resolving]
  - Vision blurred [Recovering/Resolving]
  - Rash [Recovering/Resolving]
  - Cataract [Recovering/Resolving]
  - Dizziness [Recovering/Resolving]
  - Speech disorder [Recovering/Resolving]
  - Blood pressure decreased [Recovering/Resolving]
  - Cardiovascular disorder [Unknown]

NARRATIVE: CASE EVENT DATE: 2011
